FAERS Safety Report 6217899-9 (Version None)
Quarter: 2009Q2

REPORT INFORMATION
  Report Type: 
  Country: None (occurrence: None)
  Receive Date: 20090608
  Receipt Date: 20090525
  Transmission Date: 20091009
  Serious: Yes (Death, Hospitalization)
  Sender: FDA-Public Use
  Company Number: SE-ELI_LILLY_AND_COMPANY-SE97120733A

PATIENT
  Age: 51 Year
  Sex: Male

DRUGS (1)
  1. GEMZAR [Suspect]
     Indication: NEOPLASM
     Dosage: UNK, UNKNOWN
     Route: 042
     Dates: start: 19971202

REACTIONS (2)
  - DEATH [None]
  - LOSS OF CONSCIOUSNESS [None]
